FAERS Safety Report 6421694-5 (Version None)
Quarter: 2009Q4

REPORT INFORMATION
  Report Type: 
  Country: None (occurrence: None)
  Receive Date: 20091030
  Receipt Date: 20091021
  Transmission Date: 20100525
  Serious: Yes (Hospitalization)
  Sender: FDA-Public Use
  Company Number: IT-B.I. PHARMACEUTICALS,INC./RIDGEFIELD-2009-IT-00223IT

PATIENT
  Sex: Female

DRUGS (3)
  1. CATAPRESAN TTS [Suspect]
     Indication: HYPERTENSION
     Dosage: 0.2 MG
     Route: 062
     Dates: start: 20090907, end: 20090913
  2. IOMERON-150 [Suspect]
     Indication: ARTERIOGRAM CORONARY
     Route: 013
     Dates: start: 20090907, end: 20090907
  3. LUVION [Suspect]
     Indication: HYPERTENSION
     Dosage: 50 MG
     Route: 048
     Dates: start: 20090907, end: 20090912

REACTIONS (3)
  - DERMATITIS EXFOLIATIVE [None]
  - HEPATITIS [None]
  - PYREXIA [None]
